FAERS Safety Report 9878251 (Version 2)
Quarter: 2014Q1

REPORT INFORMATION
  Report Type: Spontaneous
  Country: BR (occurrence: BR)
  Receive Date: 20140206
  Receipt Date: 20140206
  Transmission Date: 20141002
  Serious: Yes (Other)
  Sender: FDA-Public Use
  Company Number: BR-PFIZER INC-2014012591

PATIENT
  Age: 91 Year
  Sex: Female
  Weight: 60 kg

DRUGS (7)
  1. LYRICA [Suspect]
     Dosage: UNK
     Dates: start: 20140110, end: 2014
  2. LEVOTHYROXINE [Concomitant]
     Dosage: UNK
  3. PANTOPRAZOLE [Concomitant]
     Dosage: UNK
  4. CALCIUM [Concomitant]
     Dosage: UNK
  5. LACTULONA [Concomitant]
     Dosage: UNK
  6. CALCIUM CARBONATE/COLECALCIFEROL [Concomitant]
     Dosage: UNK
  7. LIMBITROL [Concomitant]
     Dosage: UNK

REACTIONS (4)
  - Abnormal behaviour [Unknown]
  - Drug intolerance [Unknown]
  - Sedation [Unknown]
  - Fatigue [Unknown]
